FAERS Safety Report 22597574 (Version 1)
Quarter: 2023Q2

REPORT INFORMATION
  Report Type: Spontaneous
  Country: US (occurrence: US)
  Receive Date: 20230614
  Receipt Date: 20230614
  Transmission Date: 20230722
  Serious: Yes (Life-Threatening, Hospitalization, Other)
  Sender: FDA-Public Use
  Company Number: US-AMGEN-USASP2023098147

PATIENT
  Sex: Female

DRUGS (4)
  1. TRASTUZUMAB [Suspect]
     Active Substance: TRASTUZUMAB
     Indication: Endometrial cancer
     Dosage: 8 MILLIGRAM/KG LOADING DOSE
     Route: 065
  2. TRASTUZUMAB [Suspect]
     Active Substance: TRASTUZUMAB
     Dosage: 4 MILLIGRAM/KG LOADING DOSE
     Route: 065
  3. CARBOPLATIN [Concomitant]
     Active Substance: CARBOPLATIN
     Indication: Endometrial cancer
     Route: 065
  4. PACLITAXEL [Concomitant]
     Active Substance: PACLITAXEL
     Indication: Endometrial cancer
     Route: 065

REACTIONS (7)
  - Melaena [Recovered/Resolved]
  - Thrombocytopenia [Recovered/Resolved]
  - Vaginal haemorrhage [Recovered/Resolved]
  - Catheter site bruise [Recovered/Resolved]
  - Anaemia [Recovered/Resolved]
  - Rash [Recovered/Resolved]
  - Off label use [Unknown]
